FAERS Safety Report 19621385 (Version 1)
Quarter: 2021Q3

REPORT INFORMATION
  Report Type: Spontaneous
  Country: US (occurrence: US)
  Receive Date: 20210728
  Receipt Date: 20210728
  Transmission Date: 20211014
  Serious: No
  Sender: FDA-Public Use
  Company Number: US-AMGEN-USASP2021111781

PATIENT
  Age: 79 Year
  Sex: Female

DRUGS (2)
  1. PROLIA [Suspect]
     Active Substance: DENOSUMAB
     Indication: OSTEOPOROSIS POSTMENOPAUSAL
     Dosage: 60 MILLIGRAM,
     Route: 065
     Dates: start: 202012
  2. TYLENOL [Concomitant]
     Active Substance: ACETAMINOPHEN

REACTIONS (6)
  - Dyspnoea [Unknown]
  - Groin pain [Unknown]
  - Mobility decreased [Unknown]
  - Loss of personal independence in daily activities [Unknown]
  - Tremor [Unknown]
  - Pain [Unknown]

NARRATIVE: CASE EVENT DATE: 202107
